FAERS Safety Report 24084303 (Version 1)
Quarter: 2024Q3

REPORT INFORMATION
  Report Type: Spontaneous
  Country: US (occurrence: None)
  Receive Date: 20240711
  Receipt Date: 20240711
  Transmission Date: 20241017
  Serious: Yes (Hospitalization)
  Sender: Public
  Company Number: None

PATIENT
  Sex: Female

DRUGS (1)
  1. PAZOPANIB HYDROCHLORIDE [Suspect]
     Active Substance: PAZOPANIB HYDROCHLORIDE
     Dosage: 800 MG DAILY BY MOUTH?
     Route: 048
     Dates: start: 202403

REACTIONS (4)
  - Diarrhoea [None]
  - Fatigue [None]
  - Hypertension [None]
  - Blood pressure measurement [None]
